FAERS Safety Report 10400423 (Version 1)
Quarter: 2014Q3

REPORT INFORMATION
  Report Type: Spontaneous
  Country: US (occurrence: US)
  Receive Date: 20140821
  Receipt Date: 20140821
  Transmission Date: 20150326
  Serious: No
  Sender: FDA-Public Use
  Company Number: US-ASTRAZENECA-2013SE93082

PATIENT
  Age: 73 Year
  Sex: Female
  Weight: 61.2 kg

DRUGS (1)
  1. SYMBICORT [Suspect]
     Active Substance: BUDESONIDE\FORMOTEROL FUMARATE DIHYDRATE
     Indication: CHRONIC OBSTRUCTIVE PULMONARY DISEASE
     Dosage: 80/4.5 MCG. TWO PUFFS TWO TIMES A DAY
     Route: 055

REACTIONS (2)
  - Circumstance or information capable of leading to medication error [Unknown]
  - Lip injury [Unknown]

NARRATIVE: CASE EVENT DATE: 201312
